FAERS Safety Report 9355972 (Version 1)
Quarter: 2013Q2

REPORT INFORMATION
  Report Type: Spontaneous
  Country: GB (occurrence: GB)
  Receive Date: 20130619
  Receipt Date: 20130619
  Transmission Date: 20140414
  Serious: Yes (Hospitalization)
  Sender: FDA-Public Use
  Company Number: GB-TEVA-412954ISR

PATIENT
  Age: 55 Year
  Sex: Female
  Weight: 69 kg

DRUGS (10)
  1. VINCRISTINE [Suspect]
     Indication: B-CELL LYMPHOMA
     Route: 042
     Dates: start: 20130123
  2. PREDNISOLONE [Suspect]
     Indication: B-CELL LYMPHOMA
     Route: 065
     Dates: start: 20130123
  3. OBINUTUZUMAB MONOCLONAL ANTIBODIES [Suspect]
     Indication: NON-HODGKIN^S LYMPHOMA UNSPECIFIED HISTOLOGY INDOLENT
     Route: 042
     Dates: start: 20130123
  4. CYCLOPHOSPHAMIDE [Suspect]
     Indication: B-CELL LYMPHOMA
     Route: 042
     Dates: start: 20130123
  5. ORAMORPH [Concomitant]
     Indication: ABDOMINAL PAIN LOWER
  6. MACROGOL [Concomitant]
     Indication: CONSTIPATION
  7. SENOKOT [Concomitant]
     Indication: CONSTIPATION
  8. PREGABALIN [Concomitant]
     Indication: PRODUCT USED FOR UNKNOWN INDICATION
  9. CHLORPHENIRAMINE MALEATE [Concomitant]
     Indication: PROPHYLAXIS
     Dates: start: 20130123
  10. PARACETAMOL [Concomitant]
     Indication: PROPHYLAXIS
     Dates: start: 20130123

REACTIONS (1)
  - Pulmonary embolism [Recovering/Resolving]
